FAERS Safety Report 10271288 (Version 1)
Quarter: 2014Q1

REPORT INFORMATION
  Report Type: Spontaneous
  Country: US (occurrence: None)
  Receive Date: 20140306
  Receipt Date: 20140306
  Transmission Date: 20141002
  Serious: Yes (Hospitalization)
  Sender: FDA-Public Use
  Company Number: 163-21880-13081598

PATIENT
  Age: 60 Year
  Sex: Male
  Weight: 97.1 kg

DRUGS (18)
  1. REVLIMID [Suspect]
     Indication: PLASMA CELL MYELOMA
     Route: 048
     Dates: start: 201306
  2. MAGNESIUM OXIDE (MAGNESIUM OXIDE) (TABLETS) [Concomitant]
  3. VITAMIN B6 (PYRIDOXINE HYDROCHLORIDE) (TABLETS) [Concomitant]
  4. ASPIRIN (ACETYLSALICYLIC ACID) (CHEWABLE TABLET) [Concomitant]
  5. OXYCONTIN (OXYCODONE HYDROCHLORIDE) (TABLETS) [Concomitant]
  6. DILAUDID (HYDROMORPHONE HYDROCHLORIDE) (TABLETS) [Concomitant]
  7. ATIVAN (LORAZEPAM) (TABLETS) [Concomitant]
  8. VITAMIN D3 (COLECALCIFEROL) [Concomitant]
  9. PLAVIX (CLOPIDOGREL SULFATE) (TABLETS) [Concomitant]
  10. CARDIZEM (DILTIAZEM HYDROCHLORIDE) (TABLETS) [Concomitant]
  11. PANTOPRAZOLE SOD DR (PANTOPRAZOLE SODIUM) (TABLETS) [Concomitant]
  12. LIPITOR (ATORVASTATIN) (TABLETS) [Concomitant]
  13. MIRTAZAPINE (MIRTAZAPINE) (UNKNOWN) [Concomitant]
  14. ACYCLOVIR (ACICLOVIR) (TABLETS) [Concomitant]
  15. GABAPENTIN (GABAPENTIN) (CAPSULES) [Concomitant]
  16. ZOFRAN (ONDANSETRON HYDROCHLORIDE) (TABLETS) [Concomitant]
  17. LEVOTHROID (LEVOTHYROXINE SODIUM) (TABLETS) [Concomitant]
  18. CELEXA (CITALOPRAM HYDROBROMIDE) (TABLETS) [Concomitant]

REACTIONS (2)
  - Malaise [None]
  - Drug dose omission [None]
